FAERS Safety Report 15980476 (Version 1)
Quarter: 2019Q1

REPORT INFORMATION
  Report Type: Spontaneous
  Country: GB (occurrence: GB)
  Receive Date: 20190219
  Receipt Date: 20190219
  Transmission Date: 20190418
  Serious: Yes (Life-Threatening, Disabling, Other)
  Sender: FDA-Public Use
  Company Number: GB-OTSUKA-2019_004333

PATIENT
  Sex: Male

DRUGS (1)
  1. ABILIFY [Suspect]
     Active Substance: ARIPIPRAZOLE
     Indication: HALLUCINATION, AUDITORY
     Dosage: UNK
     Route: 065

REACTIONS (24)
  - Paralysis [Recovered/Resolved]
  - Dependence [Recovered/Resolved]
  - Withdrawal syndrome [Recovered/Resolved]
  - Dyskinesia [Recovered/Resolved]
  - Product use in unapproved indication [Unknown]
  - Gait disturbance [Recovered/Resolved]
  - Decreased interest [Unknown]
  - Psychological trauma [Unknown]
  - Eye movement disorder [Recovered/Resolved]
  - Hallucination, auditory [Unknown]
  - Vision blurred [Recovered/Resolved]
  - Agitation [Recovered/Resolved]
  - Personal relationship issue [Unknown]
  - Chronic fatigue syndrome [Not Recovered/Not Resolved]
  - Disturbance in attention [Recovered/Resolved]
  - Suicidal ideation [Recovered/Resolved]
  - Paranoia [Recovered/Resolved]
  - Obsessive-compulsive disorder [Not Recovered/Not Resolved]
  - Epistaxis [Recovered/Resolved]
  - Syncope [Recovered/Resolved]
  - Akathisia [Recovered/Resolved]
  - Emotional distress [Unknown]
  - Vomiting [Recovered/Resolved]
  - Tremor [Unknown]
